FAERS Safety Report 24331401 (Version 1)
Quarter: 2024Q3

REPORT INFORMATION
  Report Type: Spontaneous
  Country: CN (occurrence: CN)
  Receive Date: 20240918
  Receipt Date: 20240918
  Transmission Date: 20241016
  Serious: Yes (Hospitalization, Other)
  Sender: NOVARTIS
  Company Number: CN-002147023-NVSC2024CN183876

PATIENT
  Age: 32 Year
  Sex: Male
  Weight: 65 kg

DRUGS (2)
  1. OXCARBAZEPINE [Suspect]
     Active Substance: OXCARBAZEPINE
     Indication: Epilepsy
     Dosage: 0.600 G, BID
     Route: 048
     Dates: start: 20240901
  2. PERAMPANEL [Suspect]
     Active Substance: PERAMPANEL
     Indication: Epilepsy
     Dosage: 6.000 MG, BID
     Route: 048
     Dates: start: 20240901

REACTIONS (1)
  - Liver injury [Recovering/Resolving]

NARRATIVE: CASE EVENT DATE: 20240903
